FAERS Safety Report 21924131 (Version 1)
Quarter: 2023Q1

REPORT INFORMATION
  Report Type: Spontaneous
  Country: CN (occurrence: CN)
  Receive Date: 20230130
  Receipt Date: 20230130
  Transmission Date: 20230417
  Serious: Yes (Other)
  Sender: FDA-Public Use
  Company Number: CN-SUN PHARMACEUTICAL INDUSTRIES LTD-2022R1-358155

PATIENT
  Age: 68 Year
  Sex: Male

DRUGS (4)
  1. PACLITAXEL [Suspect]
     Active Substance: PACLITAXEL
     Indication: Chemotherapy
     Dosage: 175 MILLIGRAM/SQ. METER, 1 DOSE/3 WEEKS
     Route: 065
  2. CISPLATIN [Suspect]
     Active Substance: CISPLATIN
     Indication: Chemotherapy
     Dosage: 75 MILLIGRAM/SQ. METER, 1 DOSE/3 WEEKS
     Route: 065
  3. SINTILIMAB [Suspect]
     Active Substance: SINTILIMAB
     Indication: Chemotherapy
     Dosage: 200 MILLIGRAM, 1 DOSE/3 WEEKS
     Route: 065
  4. GEMCITABINE [Suspect]
     Active Substance: GEMCITABINE
     Indication: Chemotherapy
     Dosage: 1000 MILLIGRAM/SQ. METER, 1 DOSE/3 WEEKS, D1,8
     Route: 065

REACTIONS (1)
  - Therapy partial responder [Unknown]
